FAERS Safety Report 9166128 (Version 2)
Quarter: 2013Q1

REPORT INFORMATION
  Report Type: Spontaneous
  Country: BR (occurrence: None)
  Receive Date: 20130301
  Receipt Date: 20130325
  Transmission Date: 20140127
  Serious: Yes (Life-Threatening, Other)
  Sender: FDA-Public Use
  Company Number: 2013-0892

PATIENT
  Age: 33 Year
  Sex: Female

DRUGS (3)
  1. DYSPORT (BOTULINUM TOXIN TYPE A) (BOTULINUM TOXIN TYPE A) [Suspect]
     Indication: SKIN WRINKLING
     Dosage: 1210 UNITS (120 UNITS, 1 IN 1 CYCLE(S)), INTRAMUSCULAR
     Route: 030
     Dates: start: 20130131, end: 20130131
  2. DYSPORT (BOTULINUM TOXIN TYPE A) (BOTULINUM TOXIN TYPE A) [Suspect]
     Indication: SKIN WRINKLING
     Dosage: 1210 UNITS (120 UNITS, 1 IN 1 CYCLE(S)), INTRAMUSCULAR
     Route: 030
     Dates: start: 20130131, end: 20130131
  3. DYSPORT (BOTULINUM TOXIN TYPE A) (BOTULINUM TOXIN TYPE A) [Suspect]
     Indication: OFF LABEL USE
     Dosage: 1210 UNITS (120 UNITS, 1 IN 1 CYCLE(S)), INTRAMUSCULAR
     Route: 030
     Dates: start: 20130131, end: 20130131

REACTIONS (5)
  - Anaphylactic shock [None]
  - Convulsion [None]
  - Confusional state [None]
  - Somnolence [None]
  - Injection site haematoma [None]
